FAERS Safety Report 11756779 (Version 1)
Quarter: 2015Q4

REPORT INFORMATION
  Report Type: Spontaneous
  Country: US (occurrence: US)
  Receive Date: 20151120
  Receipt Date: 20151120
  Transmission Date: 20160304
  Serious: No
  Sender: FDA-Public Use
  Company Number: US-TEVA-606010USA

PATIENT
  Sex: Female
  Weight: 74.91 kg

DRUGS (1)
  1. CRYSELLE [Suspect]
     Active Substance: ETHINYL ESTRADIOL\NORGESTREL
     Indication: VON WILLEBRAND^S DISEASE
     Dosage: ONCE A DAY OR OTHERWISE NEEDED MORE
     Route: 048

REACTIONS (3)
  - Product substitution issue [Not Recovered/Not Resolved]
  - Metrorrhagia [Not Recovered/Not Resolved]
  - Drug ineffective [Not Recovered/Not Resolved]
